FAERS Safety Report 6128306-9 (Version None)
Quarter: 2009Q1

REPORT INFORMATION
  Report Type: 
  Country: None (occurrence: None)
  Receive Date: 20090323
  Receipt Date: 20090313
  Transmission Date: 20090719
  Serious: Yes (Hospitalization, Disabling)
  Sender: FDA-Public Use
  Company Number: A0765800A

PATIENT
  Age: 49 Year
  Sex: Male
  Weight: 150 kg

DRUGS (11)
  1. AVANDIA [Suspect]
     Dosage: 8MG PER DAY
     Route: 048
     Dates: start: 20001001, end: 20060904
  2. GLUCOPHAGE [Concomitant]
  3. PLENDIL [Concomitant]
  4. COZAAR [Concomitant]
  5. LEVBID [Concomitant]
  6. NEXIUM [Concomitant]
  7. BEXTRA [Concomitant]
  8. CELEBREX [Concomitant]
  9. HYDROCODONE [Concomitant]
  10. METFORMIN [Concomitant]
     Dates: end: 20060901
  11. DARVOCET [Concomitant]

REACTIONS (3)
  - CARDIAC FAILURE CONGESTIVE [None]
  - ISCHAEMIC CARDIOMYOPATHY [None]
  - MYOCARDIAL INFARCTION [None]
